FAERS Safety Report 8589890-9 (Version None)
Quarter: 2012Q3

REPORT INFORMATION
  Report Type: 
  Country: None (occurrence: None)
  Receive Date: 20120813
  Receipt Date: 20120806
  Transmission Date: 20120928
  Serious: Yes (Death, Hospitalization, Other)
  Sender: FDA-Public Use
  Company Number: PHHY2011JP28684

PATIENT
  Age: 56 Year
  Sex: Female

DRUGS (18)
  1. CODEINE PHOSPHATE [Concomitant]
     Dosage: 60 MG
     Route: 048
     Dates: start: 20110131, end: 20110221
  2. AFINITOR [Suspect]
     Dosage: 10 MG, QD
     Route: 048
     Dates: start: 20110521, end: 20110626
  3. ASTOMIN [Concomitant]
     Dosage: 30 MG
     Route: 048
     Dates: start: 20101022, end: 20110323
  4. AFINITOR [Suspect]
     Indication: METASTATIC RENAL CELL CARCINOMA
     Dosage: 10 MG, DAILY
     Route: 048
     Dates: start: 20110107, end: 20110222
  5. SUNITINIB MALATE [Concomitant]
     Dosage: 37.5 MG, UNK
     Route: 048
  6. CONIEL [Concomitant]
     Dosage: 4 MG
     Route: 048
     Dates: start: 20101210
  7. PHENOBARBITAL TAB [Concomitant]
     Dosage: 30 MG, UNK
     Route: 048
     Dates: start: 20110603, end: 20110718
  8. AFINITOR [Suspect]
     Dosage: 10 MG, QD
     Route: 048
     Dates: start: 20110331, end: 20110426
  9. CONIEL [Concomitant]
     Dosage: 4 MG, UNK
  10. MUCODYNE [Concomitant]
     Dosage: 1500 MG, UNK
     Route: 048
     Dates: start: 20110304, end: 20110323
  11. SUNITINIB MALATE [Concomitant]
     Dosage: 25 MG, UNK
  12. CONIEL [Concomitant]
     Dosage: 4 MG, UNK
     Dates: end: 20110421
  13. ASTOMIN [Concomitant]
     Dosage: 60 MG, UNK
     Route: 048
  14. PRAVASTATIN [Concomitant]
     Indication: HYPERLIPIDAEMIA
     Dosage: 10 MG, UNK
     Route: 048
     Dates: start: 20110422, end: 20110624
  15. METABANYL [Concomitant]
     Dosage: 6 MG, UNK
     Route: 048
     Dates: start: 20110222, end: 20110601
  16. SUNITINIB MALATE [Concomitant]
     Dosage: 50 MG, UNK
     Route: 048
     Dates: start: 20100722, end: 20101216
  17. CODEINE PHOSPHATE [Concomitant]
     Dosage: 60 MG, UNK
  18. URSO 250 [Concomitant]
     Dosage: 300 MG, UNK
     Route: 048
     Dates: start: 20110302, end: 20110323

REACTIONS (7)
  - PNEUMONIA [None]
  - NEOPLASM MALIGNANT [None]
  - HEPATIC FUNCTION ABNORMAL [None]
  - NEOPLASM PROGRESSION [None]
  - PULMONARY MYCOSIS [None]
  - BLOOD LACTATE DEHYDROGENASE INCREASED [None]
  - CONDITION AGGRAVATED [None]
